FAERS Safety Report 21726846 (Version 1)
Quarter: 2022Q4

REPORT INFORMATION
  Report Type: Report from Study
  Country: MX (occurrence: MX)
  Receive Date: 20221214
  Receipt Date: 20221214
  Transmission Date: 20230113
  Serious: Yes (Death)
  Sender: FDA-Public Use
  Company Number: MX-BRISTOL-MYERS SQUIBB COMPANY-2022-152834

PATIENT
  Age: 54 Year
  Sex: Male

DRUGS (12)
  1. POMALIDOMIDE [Suspect]
     Active Substance: POMALIDOMIDE
     Indication: Plasma cell myeloma refractory
     Route: 048
     Dates: start: 20220915, end: 20221005
  2. POMALIDOMIDE [Suspect]
     Active Substance: POMALIDOMIDE
     Route: 048
     Dates: start: 20221013, end: 20221020
  3. POMALIDOMIDE [Suspect]
     Active Substance: POMALIDOMIDE
     Route: 048
     Dates: start: 20221110
  4. BELANTAMAB MAFODOTIN [Suspect]
     Active Substance: BELANTAMAB MAFODOTIN
     Indication: Plasma cell myeloma refractory
     Route: 042
     Dates: start: 20220915, end: 20220915
  5. BELANTAMAB MAFODOTIN [Suspect]
     Active Substance: BELANTAMAB MAFODOTIN
     Route: 042
     Dates: start: 20221013, end: 20221013
  6. BELANTAMAB MAFODOTIN [Suspect]
     Active Substance: BELANTAMAB MAFODOTIN
     Route: 042
     Dates: start: 20221110
  7. NIROGACESTAT [Suspect]
     Active Substance: NIROGACESTAT
     Indication: Plasma cell myeloma refractory
     Route: 048
     Dates: start: 20220913, end: 20220914
  8. NIROGACESTAT [Suspect]
     Active Substance: NIROGACESTAT
     Route: 048
     Dates: start: 20220915, end: 20221012
  9. NIROGACESTAT [Suspect]
     Active Substance: NIROGACESTAT
     Route: 048
     Dates: start: 20221110
  10. DEXAMETHASONE [Suspect]
     Active Substance: DEXAMETHASONE
     Indication: Plasma cell myeloma refractory
     Route: 048
     Dates: start: 20220915, end: 20221006
  11. DEXAMETHASONE [Suspect]
     Active Substance: DEXAMETHASONE
     Route: 048
     Dates: start: 20221013
  12. DEXAMETHASONE [Suspect]
     Active Substance: DEXAMETHASONE
     Route: 048
     Dates: start: 20221110

REACTIONS (2)
  - Metabolic acidosis [Fatal]
  - Respiratory alkalosis [Fatal]

NARRATIVE: CASE EVENT DATE: 20221211
